FAERS Safety Report 6395900-X (Version None)
Quarter: 2009Q4

REPORT INFORMATION
  Report Type: 
  Country: None (occurrence: None)
  Receive Date: 20091009
  Receipt Date: 20090810
  Transmission Date: 20100525
  Serious: Yes (Other)
  Sender: FDA-Public Use
  Company Number: A0802378A

PATIENT
  Age: 47 Year
  Sex: Female
  Weight: 142.3 kg

DRUGS (8)
  1. TYKERB [Suspect]
     Route: 048
     Dates: start: 20090601, end: 20090811
  2. XELODA [Concomitant]
  3. LEXAPRO [Concomitant]
  4. CELEBREX [Concomitant]
  5. MICARDIS [Concomitant]
  6. OXYCODONE [Concomitant]
  7. MORPHINE SULFATE [Concomitant]
  8. COUMADIN [Concomitant]

REACTIONS (1)
  - LIVER FUNCTION TEST ABNORMAL [None]
